FAERS Safety Report 11446546 (Version 4)
Quarter: 2016Q1

REPORT INFORMATION
  Report Type: Spontaneous
  Country: AT (occurrence: AT)
  Receive Date: 20150902
  Receipt Date: 20160208
  Transmission Date: 20160525
  Serious: Yes (Other)
  Sender: FDA-Public Use
  Company Number: AT-AMGEN-AUTSP2015074019

PATIENT
  Age: 88 Year
  Sex: Female

DRUGS (2)
  1. HYDROXYUREA. [Suspect]
     Active Substance: HYDROXYUREA
     Indication: THROMBOCYTOSIS
     Route: 065
  2. PROLIA [Suspect]
     Active Substance: DENOSUMAB
     Indication: OSTEOPOROSIS
     Dosage: UNK
     Route: 065

REACTIONS (16)
  - Wound infection [Recovering/Resolving]
  - Skin discolouration [Recovering/Resolving]
  - Fatigue [Unknown]
  - Activities of daily living impaired [Unknown]
  - Pain [Recovered/Resolved]
  - Skin infection [Unknown]
  - Skin reaction [Not Recovered/Not Resolved]
  - Thrombocytosis [Unknown]
  - Musculoskeletal disorder [Not Recovered/Not Resolved]
  - Peripheral coldness [Not Recovered/Not Resolved]
  - Rash [Unknown]
  - Skin haemorrhage [Recovering/Resolving]
  - Pain in extremity [Recovering/Resolving]
  - Inflammation [Recovered/Resolved]
  - Drug interaction [Unknown]
  - Skin sensitisation [Not Recovered/Not Resolved]
